FAERS Safety Report 7626546-0 (Version None)
Quarter: 2011Q3

REPORT INFORMATION
  Report Type: 
  Country: None (occurrence: None)
  Receive Date: 20110721
  Receipt Date: 20110715
  Transmission Date: 20111222
  Serious: Yes (Death, Other)
  Sender: FDA-Public Use
  Company Number: US-GLAXOSMITHKLINE-A0936344A

PATIENT
  Age: 56 Year
  Sex: Male

DRUGS (2)
  1. PROMACTA [Suspect]
     Indication: IDIOPATHIC THROMBOCYTOPENIC PURPURA
     Dosage: 50MG PER DAY
     Dates: start: 20110207, end: 20110509
  2. CORTICOSTEROIDS [Concomitant]
     Indication: IDIOPATHIC THROMBOCYTOPENIC PURPURA
     Dates: start: 20100901

REACTIONS (3)
  - CHRONIC LYMPHOCYTIC LEUKAEMIA [None]
  - DRUG INEFFECTIVE [None]
  - MYOCARDIAL INFARCTION [None]
